FAERS Safety Report 7371612-0 (Version None)
Quarter: 2011Q1

REPORT INFORMATION
  Report Type: 
  Country: None (occurrence: None)
  Receive Date: 20110324
  Receipt Date: 20101216
  Transmission Date: 20110831
  Serious: No
  Sender: FDA-Public Use
  Company Number: US-MYLANLABS-2010S1022772

PATIENT
  Sex: Male

DRUGS (2)
  1. TRAZODONE HCL [Suspect]
     Indication: INSOMNIA
     Route: 048
     Dates: start: 20101208
  2. CLONAZEPAM [Concomitant]
     Indication: ANXIETY

REACTIONS (3)
  - FEELING ABNORMAL [None]
  - PRURITUS [None]
  - OEDEMA PERIPHERAL [None]
